FAERS Safety Report 25328873 (Version 2)
Quarter: 2025Q2

REPORT INFORMATION
  Report Type: Spontaneous
  Country: US (occurrence: US)
  Receive Date: 20250519
  Receipt Date: 20250606
  Transmission Date: 20250716
  Serious: Yes (Hospitalization, Other)
  Sender: CSL BEHRING
  Company Number: US-BEH-2025205240

PATIENT
  Age: 65 Year
  Sex: Female

DRUGS (1)
  1. HIZENTRA [Suspect]
     Active Substance: HUMAN IMMUNOGLOBULIN G
     Indication: Immunodeficiency common variable
     Dosage: 8 G, QW
     Route: 058
     Dates: start: 20240614

REACTIONS (2)
  - Hospitalisation [Unknown]
  - Mechanical ventilation [Unknown]

NARRATIVE: CASE EVENT DATE: 20250508
